FAERS Safety Report 7049086-9 (Version None)
Quarter: 2010Q4

REPORT INFORMATION
  Report Type: 
  Country: None (occurrence: None)
  Receive Date: 20101007
  Receipt Date: 20100506
  Transmission Date: 20110411
  Serious: Yes (Other)
  Sender: FDA-Public Use
  Company Number: ACO_00840_2010

PATIENT
  Sex: Female

DRUGS (3)
  1. AMPYRA [Suspect]
     Indication: MULTIPLE SCLEROSIS
     Dosage: (10 MG BID ORAL)
     Route: 048
     Dates: start: 20100504, end: 20100504
  2. SYNTHROID [Concomitant]
  3. MULTIVITAMIN /01229101/ [Concomitant]

REACTIONS (7)
  - BRUXISM [None]
  - CONFUSIONAL STATE [None]
  - CONVULSION [None]
  - FEELING ABNORMAL [None]
  - LIP INJURY [None]
  - LOSS OF CONSCIOUSNESS [None]
  - RESTLESSNESS [None]
